FAERS Safety Report 4577377-X (Version None)
Quarter: 2005Q1

REPORT INFORMATION
  Report Type: 
  Country: None (occurrence: None)
  Receive Date: 20050210
  Receipt Date: 20050128
  Transmission Date: 20050727
  Serious: Yes (Other)
  Sender: FDA-Public Use
  Company Number: AU-GLAXOSMITHKLINE-B0370544A

PATIENT
  Age: 54 Year
  Sex: Female
  Weight: 75 kg

DRUGS (4)
  1. IMIGRAN [Suspect]
     Indication: ILL-DEFINED DISORDER
     Dosage: 100MG AS REQUIRED
     Dates: start: 19920101
  2. SANDOMIGRAN [Concomitant]
     Indication: MIGRAINE
     Dosage: 2U PER DAY
     Dates: start: 19910101
  3. PROVERA [Concomitant]
     Indication: MENOPAUSAL SYMPTOMS
     Dosage: 5MG PER DAY
     Dates: start: 19890101
  4. PREMARIN [Concomitant]
     Indication: MENOPAUSAL SYMPTOMS
     Dosage: 625MCG PER DAY
     Dates: start: 19890101

REACTIONS (2)
  - PARESIS [None]
  - PHARYNGITIS [None]
